FAERS Safety Report 22291816 (Version 1)
Quarter: 2023Q2

REPORT INFORMATION
  Report Type: Report from Study
  Country: IL (occurrence: IL)
  Receive Date: 20230507
  Receipt Date: 20230507
  Transmission Date: 20230721
  Serious: Yes (Other)
  Sender: FDA-Public Use
  Company Number: IL-ABBVIE-4709484

PATIENT
  Sex: Male

DRUGS (4)
  1. CARBIDOPA\LEVODOPA [Suspect]
     Active Substance: CARBIDOPA\LEVODOPA
     Indication: Parkinson^s disease
     Dosage: MORNING DOSAGE(ML)  15.0, CONTINUOUS DOSAGE (ML/H)  2.3, EXTRA DOSAGE (ML)  1.8
     Route: 050
  2. CARBIDOPA\LEVODOPA [Suspect]
     Active Substance: CARBIDOPA\LEVODOPA
     Dosage: MORNING DOSAGE(ML)  15.0, CONTINUOUS DOSAGE (ML/H)  2.5, EXTRA DOSAGE (ML)  1.8
     Route: 050
  3. CARBIDOPA\LEVODOPA [Suspect]
     Active Substance: CARBIDOPA\LEVODOPA
     Route: 050
     Dates: start: 20220801
  4. PIROXICAM BETADEX [Suspect]
     Active Substance: PIROXICAM BETADEX
     Indication: Inflammation
     Route: 065

REACTIONS (12)
  - Gastric haemorrhage [Unknown]
  - Intentional product misuse [Unknown]
  - Arthritis [Unknown]
  - Head titubation [Unknown]
  - Inflammatory pain [Unknown]
  - Cartilage injury [Unknown]
  - Stoma site discharge [Recovering/Resolving]
  - Insomnia [Recovering/Resolving]
  - Arthralgia [Unknown]
  - Product dose omission in error [Unknown]
  - Inflammation [Unknown]
  - Tremor [Unknown]
